FAERS Safety Report 24819951 (Version 1)
Quarter: 2025Q1

REPORT INFORMATION
  Report Type: Spontaneous
  Country: SA (occurrence: None)
  Receive Date: 20250108
  Receipt Date: 20250108
  Transmission Date: 20250408
  Serious: Yes (Hospitalization)
  Sender: FDA-CTU
  Company Number: None

PATIENT
  Age: 5 Year
  Sex: Male
  Weight: 15.4 kg

DRUGS (1)
  1. CLOBAZAM [Suspect]
     Active Substance: CLOBAZAM
     Dosage: FREQUENCY : TWICE A DAY;?
     Route: 048
     Dates: start: 20200603, end: 20241109

REACTIONS (1)
  - Macroglossia [None]

NARRATIVE: CASE EVENT DATE: 20241106
